FAERS Safety Report 5150297-8 (Version None)
Quarter: 2006Q4

REPORT INFORMATION
  Report Type: 
  Country: None (occurrence: None)
  Receive Date: 20061108
  Receipt Date: 20061026
  Transmission Date: 20070319
  Serious: Yes (Hospitalization)
  Sender: FDA-Public Use
  Company Number: NL-2006-023381

PATIENT
  Age: 80 Year
  Sex: Female

DRUGS (7)
  1. MABCAMPATH () 3ML [Suspect]
     Indication: CHRONIC LYMPHOCYTIC LEUKAEMIA
     Dosage: 3.10,30 MG, 1 DOSE 30 MG 3/WEEK, SUBCUTANEOUS
     Route: 058
     Dates: start: 20060731, end: 20060807
  2. HYDROCORTISON 10 MG JENAPHARM (HYDROCORTISONE) TABLET [Suspect]
     Indication: PYREXIA
     Dates: end: 20060809
  3. TAVEGIL /NET/ (CLEMASTINE FUMARATE) [Concomitant]
  4. ACTONEL [Concomitant]
  5. CALCICHEW [Concomitant]
  6. CO-TRIMOXAZOLE (CO-TRIMOXAZOLE) [Concomitant]
  7. FAMVIR /NET/(PENICICLOVIR) [Concomitant]

REACTIONS (4)
  - HYPERKINESIA [None]
  - PYREXIA [None]
  - REFUSAL OF TREATMENT BY PATIENT [None]
  - RESTLESSNESS [None]
